FAERS Safety Report 7271054-2 (Version None)
Quarter: 2011Q1

REPORT INFORMATION
  Report Type: 
  Country: None (occurrence: None)
  Receive Date: 20110202
  Receipt Date: 20110131
  Transmission Date: 20110831
  Serious: Yes (Other)
  Sender: FDA-Public Use
  Company Number: US-PFIZER INC-2011022328

PATIENT
  Sex: Female
  Weight: 81.633 kg

DRUGS (2)
  1. GEODON [Suspect]
     Dosage: 60 MG, 1X/DAY
  2. GEODON [Suspect]
     Dosage: 20 MG, 3X/DAY

REACTIONS (3)
  - MALAISE [None]
  - FEELING ABNORMAL [None]
  - SUICIDAL IDEATION [None]
